FAERS Safety Report 14153169 (Version 1)
Quarter: 2017Q4

REPORT INFORMATION
  Report Type: Other
  Country: DK (occurrence: DK)
  Receive Date: 20171102
  Receipt Date: 20171102
  Transmission Date: 20180321
  Serious: Yes (Other)
  Sender: FDA-Public Use
  Company Number: DK-CELLTRION INC.-2017DK014958

PATIENT

DRUGS (2)
  1. INFLECTRA [Suspect]
     Active Substance: INFLIXIMAB-DYYB
     Indication: CROHN^S DISEASE
     Dosage: STRENGTH: 100 MG
     Route: 042
     Dates: start: 20170410, end: 20171018
  2. PREDNISOLON                        /00016201/ [Concomitant]
     Active Substance: PREDNISOLONE
     Dosage: DOSE: DOSING BY SCHEDULE, STRENGTH: 5 MG
     Route: 048
     Dates: start: 20170911

REACTIONS (8)
  - Dizziness [Recovered/Resolved]
  - Erythema [Recovered/Resolved]
  - Heart rate increased [Recovered/Resolved]
  - Conjunctival hyperaemia [Recovered/Resolved]
  - Malaise [Recovered/Resolved]
  - Blood pressure increased [Recovered/Resolved]
  - Anaphylactic reaction [Recovered/Resolved]
  - Tremor [Recovered/Resolved]

NARRATIVE: CASE EVENT DATE: 20171018
